FAERS Safety Report 21917118 (Version 4)
Quarter: 2023Q2

REPORT INFORMATION
  Report Type: Report from Study
  Country: FR (occurrence: FR)
  Receive Date: 20230126
  Receipt Date: 20230405
  Transmission Date: 20230721
  Serious: Yes (Death, Hospitalization)
  Sender: FDA-Public Use
  Company Number: FR-JNJFOC-20220610217

PATIENT
  Age: 68 Year
  Sex: Male
  Weight: 71 kg

DRUGS (14)
  1. TECLISTAMAB [Suspect]
     Active Substance: TECLISTAMAB
     Indication: Plasma cell myeloma
     Route: 058
     Dates: start: 20210825, end: 20220530
  2. NIROGACESTAT [Suspect]
     Active Substance: NIROGACESTAT
     Indication: Plasma cell myeloma
     Route: 048
     Dates: start: 20210906, end: 20220603
  3. ASPIRIN [Concomitant]
     Active Substance: ASPIRIN
     Indication: Thrombosis prophylaxis
     Route: 048
     Dates: start: 2016
  4. PENICILLIN V [Concomitant]
     Active Substance: PENICILLIN V
     Indication: Infection prophylaxis
     Dosage: 1M
     Route: 048
     Dates: start: 20160801
  5. LEUCOVORIN CALCIUM [Concomitant]
     Active Substance: LEUCOVORIN CALCIUM
     Indication: Prophylaxis
     Route: 048
     Dates: start: 20160801
  6. VALACYCLOVIR HYDROCHLORIDE [Concomitant]
     Active Substance: VALACYCLOVIR HYDROCHLORIDE
     Indication: Infection prophylaxis
     Route: 048
     Dates: start: 20160801
  7. BACTRIM [Concomitant]
     Active Substance: SULFAMETHOXAZOLE\TRIMETHOPRIM
     Indication: Infection prophylaxis
     Route: 048
     Dates: start: 20160801, end: 20220623
  8. FILGRASTIM [Concomitant]
     Active Substance: FILGRASTIM
     Indication: Prophylaxis
     Dosage: 1
     Route: 030
     Dates: start: 20210301
  9. ALPRAZOLAM [Concomitant]
     Active Substance: ALPRAZOLAM
     Indication: Mixed anxiety and depressive disorder
     Route: 048
     Dates: start: 20210601
  10. ACETAMINOPHEN [Concomitant]
     Active Substance: ACETAMINOPHEN
     Indication: Musculoskeletal chest pain
     Route: 048
     Dates: start: 20210701
  11. ESOMEPRAZOLE [Concomitant]
     Active Substance: ESOMEPRAZOLE
     Indication: Gastrooesophageal reflux disease
     Route: 048
     Dates: start: 20210913
  12. XYLENE [Concomitant]
     Active Substance: XYLENE
     Indication: Sinusitis
     Route: 001
     Dates: start: 20220401
  13. FLUIMUCIL [Concomitant]
     Active Substance: ACETYLCYSTEINE
     Indication: Sinusitis
     Route: 048
     Dates: start: 20220401
  14. VENLAFAXINE [Concomitant]
     Active Substance: VENLAFAXINE HYDROCHLORIDE
     Indication: Mixed anxiety and depressive disorder
     Route: 048
     Dates: start: 2006

REACTIONS (3)
  - Sepsis [Fatal]
  - Neutrophil count decreased [Recovering/Resolving]
  - Pneumonia [Recovered/Resolved]

NARRATIVE: CASE EVENT DATE: 20220601
